FAERS Safety Report 17158398 (Version 1)
Quarter: 2019Q4

REPORT INFORMATION
  Report Type: Spontaneous
  Country: US (occurrence: US)
  Receive Date: 20191213
  Receipt Date: 20191213
  Transmission Date: 20200122
  Serious: Yes (Hospitalization)
  Sender: FDA-Public Use
  Company Number: None

PATIENT
  Age: 87 Year
  Sex: Female
  Weight: 67.6 kg

DRUGS (7)
  1. LEVOTHYROXINE 75MCG DAILY [Concomitant]
  2. POTASSIUM 10MEQ BID [Concomitant]
  3. FUROSEMIDE 20MG BID [Concomitant]
  4. MOEXOPRIL/HCTZ 7.5/12.5MG DAILY [Concomitant]
  5. RIVAROXABAM [Suspect]
     Active Substance: RIVAROXABAN
     Indication: ATRIAL FIBRILLATION
     Route: 048
  6. SIMVASTATIN 40MG DAILY [Concomitant]
  7. MELOXICAM. [Suspect]
     Active Substance: MELOXICAM
     Route: 048

REACTIONS (4)
  - Gastrointestinal haemorrhage [None]
  - Gastrooesophageal reflux disease [None]
  - Transfusion [None]
  - Nausea [None]

NARRATIVE: CASE EVENT DATE: 20151104
